FAERS Safety Report 7811759-5 (Version None)
Quarter: 2011Q4

REPORT INFORMATION
  Report Type: 
  Country: None (occurrence: None)
  Receive Date: 20111013
  Receipt Date: 20110929
  Transmission Date: 20120403
  Serious: Yes (Hospitalization)
  Sender: FDA-Public Use
  Company Number: US-ELI_LILLY_AND_COMPANY-US200710003052

PATIENT
  Sex: Female

DRUGS (16)
  1. FORTEO [Suspect]
     Dosage: 20 UG, QD
     Route: 065
  2. RANEXA [Concomitant]
     Indication: CARDIAC DISORDER
  3. PINDOLOL [Concomitant]
     Indication: HEART RATE
     Dosage: UNK UNK, BID
  4. NEXIUM [Concomitant]
  5. CALCIUM CARBONATE [Concomitant]
     Indication: BONE DISORDER
  6. LISINOPRIL [Concomitant]
     Indication: BLOOD PRESSURE
  7. PROTONIX [Concomitant]
  8. CYMBALTA [Concomitant]
  9. FORTEO [Suspect]
     Dosage: 20 UG, QD
     Route: 065
  10. NEUROTIN                           /00949202/ [Concomitant]
     Indication: NEUROPATHY PERIPHERAL
     Dosage: UNK UNK, TID
  11. LIBRAX [Concomitant]
     Indication: GASTROINTESTINAL DISORDER
     Dosage: UNK UNK, OTHER
  12. MIRAPEX [Concomitant]
     Indication: RESTLESS LEGS SYNDROME
  13. FORTEO [Suspect]
     Indication: OSTEOPOROSIS
     Dosage: 20 UG, QD
     Route: 065
     Dates: start: 20071009
  14. VYTORIN [Concomitant]
     Indication: BLOOD CHOLESTEROL
     Dosage: 1 DF, QD
  15. ASPIRIN [Concomitant]
     Dosage: UNK UNK, UNKNOWN
     Route: 065
  16. PLAVIX [Concomitant]
     Indication: CARDIAC DISORDER

REACTIONS (16)
  - NERVE COMPRESSION [None]
  - POST LUMBAR PUNCTURE SYNDROME [None]
  - INTERVERTEBRAL DISC PROTRUSION [None]
  - BACK PAIN [None]
  - HYPOACUSIS [None]
  - POSTOPERATIVE ADHESION [None]
  - DRUG DOSE OMISSION [None]
  - DEVICE MISUSE [None]
  - HEART RATE INCREASED [None]
  - BACK DISORDER [None]
  - PRODUCT QUALITY ISSUE [None]
  - FEELING ABNORMAL [None]
  - MUSCLE SPASMS [None]
  - CONDITION AGGRAVATED [None]
  - CONSTIPATION [None]
  - DIZZINESS [None]
